FAERS Safety Report 10780748 (Version 1)
Quarter: 2015Q1

REPORT INFORMATION
  Report Type: Spontaneous
  Country: US (occurrence: US)
  Receive Date: 20150210
  Receipt Date: 20150210
  Transmission Date: 20150721
  Serious: No
  Sender: FDA-Public Use
  Company Number: US-PFIZER INC-2015049331

PATIENT
  Age: 70 Year
  Sex: Male

DRUGS (3)
  1. ISORDIL [Suspect]
     Active Substance: ISOSORBIDE DINITRATE
     Dosage: UNK
     Dates: start: 20141230, end: 20150128
  2. VIAGRA [Suspect]
     Active Substance: SILDENAFIL CITRATE
     Dosage: UNK
  3. LETAIRIS [Suspect]
     Active Substance: AMBRISENTAN
     Dosage: 10 MG, QD
     Dates: start: 20140923

REACTIONS (4)
  - Agitation [Unknown]
  - Nausea [Unknown]
  - Drug ineffective [Unknown]
  - Hypoaesthesia [Unknown]
